FAERS Safety Report 5115867-1 (Version None)
Quarter: 2006Q3

REPORT INFORMATION
  Report Type: 
  Country: None (occurrence: None)
  Receive Date: 20060925
  Receipt Date: 20060913
  Transmission Date: 20061208
  Serious: No
  Sender: FDA-Public Use
  Company Number: US-2006-002487

PATIENT
  Age: 41 Year
  Sex: Male

DRUGS (9)
  1. BETASERON [Suspect]
     Indication: MULTIPLE SCLEROSIS
     Dosage: 8 MIU, EVERY 2D, SUBCUTANEOUS
     Route: 058
     Dates: start: 20051206
  2. NEURONTIN [Concomitant]
  3. PROVIGIL [Concomitant]
  4. VICODIN [Concomitant]
  5. FLEXERIL [Concomitant]
  6. CLARITIN [Concomitant]
  7. CELEBREX [Concomitant]
  8. GABATRIL (TIAGABINE HYDROCHLORIDE) [Concomitant]
  9. PREDNISONE TAB [Concomitant]

REACTIONS (1)
  - NO ADVERSE DRUG EFFECT [None]
